FAERS Safety Report 12959423 (Version 1)
Quarter: 2016Q4

REPORT INFORMATION
  Report Type: Spontaneous
  Country: US (occurrence: US)
  Receive Date: 20161118
  Receipt Date: 20161118
  Transmission Date: 20170207
  Serious: Yes (Disabling)
  Sender: FDA-Public Use
  Company Number: None

PATIENT
  Age: 67 Year
  Sex: Female
  Weight: 78.3 kg

DRUGS (19)
  1. MURO 128 EYE OINTMENT [Concomitant]
  2. MULTIVITAMIN [Concomitant]
     Active Substance: VITAMINS
  3. FISH OIL [Concomitant]
     Active Substance: FISH OIL
  4. SEROQUEL [Concomitant]
     Active Substance: QUETIAPINE FUMARATE
  5. VITAMIN D3 [Concomitant]
     Active Substance: CHOLECALCIFEROL
  6. XYLATAN [Concomitant]
  7. DEPAKOTE [Concomitant]
     Active Substance: DIVALPROEX SODIUM
  8. XANAX [Concomitant]
     Active Substance: ALPRAZOLAM
  9. ASPIRIN. [Concomitant]
     Active Substance: ASPIRIN
  10. XIIDRA [Suspect]
     Active Substance: LIFITEGRAST
     Indication: DRY EYE
     Dosage: ?          QUANTITY:1 DROP(S);?
     Route: 047
     Dates: start: 20161007, end: 20161115
  11. LOSARTAN. [Concomitant]
     Active Substance: LOSARTAN
  12. PRILOSEC [Concomitant]
     Active Substance: OMEPRAZOLE MAGNESIUM
  13. SYSTANE ULTRA LUBRICANT EYE DROP HIGH PERFORMANCE [Concomitant]
  14. TYLENOL [Concomitant]
     Active Substance: ACETAMINOPHEN
  15. NORVASC [Concomitant]
     Active Substance: AMLODIPINE BESYLATE
  16. TRIAMCINOLONE ACETONIDE. [Concomitant]
     Active Substance: TRIAMCINOLONE ACETONIDE
  17. PROBIOTIC [Concomitant]
     Active Substance: PROBIOTICS NOS
  18. CRANBERRY. [Concomitant]
     Active Substance: CRANBERRY
  19. REFRESH OPTIVE LUBRICANT EYE GEL [Concomitant]

REACTIONS (4)
  - Epistaxis [None]
  - Dysgeusia [None]
  - Eye pain [None]
  - Burning sensation [None]

NARRATIVE: CASE EVENT DATE: 20161022
